FAERS Safety Report 7551854-1 (Version None)
Quarter: 2011Q2

REPORT INFORMATION
  Report Type: 
  Country: None (occurrence: None)
  Receive Date: 20110616
  Receipt Date: 20110606
  Transmission Date: 20111010
  Serious: Yes (Other)
  Sender: FDA-Public Use
  Company Number: ES-SANOFI-AVENTIS-2011SA035640

PATIENT
  Age: 68 Year
  Sex: Female

DRUGS (1)
  1. CICLOPIROX [Suspect]
     Indication: ONYCHOMYCOSIS
     Dosage: END DATE: MAY-2011.
     Route: 065
     Dates: start: 20110504

REACTIONS (1)
  - PARONYCHIA [None]
